FAERS Safety Report 6091574-6 (Version None)
Quarter: 2009Q1

REPORT INFORMATION
  Report Type: 
  Country: None (occurrence: None)
  Receive Date: 20090225
  Receipt Date: 20080201
  Transmission Date: 20090719
  Serious: No
  Sender: FDA-Public Use
  Company Number: A0704363A

PATIENT
  Age: 31 Year
  Sex: Male
  Weight: 72.7 kg

DRUGS (1)
  1. VALTREX [Suspect]
     Indication: APHTHOUS STOMATITIS
     Dosage: 1G SINGLE DOSE
     Route: 048
     Dates: start: 20080101, end: 20080101

REACTIONS (1)
  - RASH GENERALISED [None]
